FAERS Safety Report 6252038-X (Version None)
Quarter: 2009Q2

REPORT INFORMATION
  Report Type: 
  Country: None (occurrence: None)
  Receive Date: 20090630
  Receipt Date: 20060731
  Transmission Date: 20091009
  Serious: Yes (Death, Hospitalization)
  Sender: FDA-Public Use
  Company Number: US-ROCHE-638684

PATIENT
  Sex: Male

DRUGS (6)
  1. ENFUVIRTIDE [Suspect]
     Dosage: FREQUENCY: SQ BID
     Route: 065
     Dates: start: 20030825, end: 20061006
  2. KALETRA [Concomitant]
     Dates: start: 20030825, end: 20061006
  3. VIREAD [Concomitant]
     Dosage: FREQUENCY: QD
     Dates: start: 20030825, end: 20061006
  4. INVIRASE [Concomitant]
     Dates: start: 20050404, end: 20061006
  5. BACTRIM DS [Concomitant]
     Dates: start: 20020204, end: 20061006
  6. DIFLUCAN [Concomitant]
     Dosage: FREQUENCY: QD
     Dates: start: 20020204, end: 20061006

REACTIONS (3)
  - DECREASED APPETITE [None]
  - END STAGE AIDS [None]
  - MALAISE [None]
